FAERS Safety Report 5748670-X (Version None)
Quarter: 2008Q2

REPORT INFORMATION
  Report Type: 
  Country: None (occurrence: None)
  Receive Date: 20080521
  Receipt Date: 20080507
  Transmission Date: 20081010
  Serious: Yes (Other)
  Sender: FDA-Public Use
  Company Number: 161-20785-08050862

PATIENT

DRUGS (4)
  1. THALIDOMIDE [Suspect]
     Indication: MULTIPLE MYELOMA
     Dosage: 100 MG, EACH EVENING, ORAL
     Route: 048
  2. ASOIRIN (ACETYLSALICYLIC ACID) [Concomitant]
  3. BORTEZOMIB (BORTEZOMIB) [Concomitant]
  4. DEXAMETHASONE TAB [Concomitant]

REACTIONS (7)
  - DRUG INEFFECTIVE [None]
  - DRUG TOXICITY [None]
  - FATIGUE [None]
  - HERPES ZOSTER [None]
  - NEUROPATHY PERIPHERAL [None]
  - PANCYTOPENIA [None]
  - PNEUMONIA [None]
